FAERS Safety Report 5917058-0 (Version None)
Quarter: 2008Q4

REPORT INFORMATION
  Report Type: 
  Country: None (occurrence: None)
  Receive Date: 20081010
  Receipt Date: 20081010
  Transmission Date: 20090506
  Serious: Yes (Other)
  Sender: FDA-Public Use
  Company Number: None

PATIENT
  Sex: Female
  Weight: 72.5755 kg

DRUGS (4)
  1. BONIVA [Suspect]
     Indication: OSTEOPOROSIS
     Dosage: 150MG ONCE A MONTH P.O.
     Route: 048
     Dates: start: 20070901, end: 20080501
  2. NEXIUM [Concomitant]
  3. PROTONIX [Concomitant]
  4. PREVACID [Concomitant]

REACTIONS (1)
  - DUODENAL ULCER [None]
